FAERS Safety Report 18485709 (Version 1)
Quarter: 2020Q4

REPORT INFORMATION
  Report Type: Report from Study
  Country: JP (occurrence: JP)
  Receive Date: 20201110
  Receipt Date: 20201110
  Transmission Date: 20210114
  Serious: Yes (Hospitalization, Other)
  Sender: FDA-Public Use
  Company Number: JP-ROCHE-2631911

PATIENT
  Age: 74 Year
  Sex: Female
  Weight: 46.2 kg

DRUGS (20)
  1. CARBOPLATIN. [Suspect]
     Active Substance: CARBOPLATIN
     Indication: SMALL CELL LUNG CANCER
     Dosage: AUC5
     Route: 041
     Dates: start: 20200611
  2. LUNESTA [Concomitant]
     Active Substance: ESZOPICLONE
     Indication: INSOMNIA
     Dosage: THE BEGINNING OF DOSAGE DAY: BEFORE ACQUIRING AGREEMENT
     Route: 048
  3. ATEZOLIZUMAB. [Suspect]
     Active Substance: ATEZOLIZUMAB
     Indication: SMALL CELL LUNG CANCER
     Route: 042
     Dates: start: 20200611
  4. NORVASC [Concomitant]
     Active Substance: AMLODIPINE BESYLATE
     Indication: HYPERTENSION
     Dosage: THE BEGINNING OF DOSAGE DAY: BEFORE ACQUIRING AGREEMENT
     Route: 048
  5. REBAMIPIDE [Concomitant]
     Active Substance: REBAMIPIDE
     Indication: HIATUS HERNIA
     Dosage: THE BEGINNING OF DOSAGE DAY: BEFORE ACQUIRING AGREEMENT
     Route: 048
  6. SENNOSIDE [Concomitant]
     Active Substance: SENNOSIDES
     Indication: CONSTIPATION
     Dosage: SINGLE USE
     Route: 048
     Dates: start: 20200613
  7. AZUNOL [Concomitant]
     Indication: STOMATITIS
     Dosage: PROPER QUANTITY AND SINGLE USE
     Route: 061
     Dates: start: 20200613
  8. MIYA-BM [Concomitant]
     Active Substance: CLOSTRIDIUM BUTYRICUM SPORES STRAIN M-55
     Indication: CONSTIPATION
     Route: 048
     Dates: start: 20200618
  9. DEXAMETHASONE. [Concomitant]
     Active Substance: DEXAMETHASONE
     Indication: STOMATITIS
     Dosage: PROPER QUANTITY AND SINGLE USE
     Dates: start: 20200612
  10. ETOPOSIDE. [Suspect]
     Active Substance: ETOPOSIDE
     Indication: SMALL CELL LUNG CANCER
     Dosage: THREE DAYS
     Route: 041
     Dates: start: 20200611
  11. MICARDIS [Concomitant]
     Active Substance: TELMISARTAN
     Indication: HYPERTENSION
     Dosage: THE BEGINNING OF DOSAGE DAY: BEFORE ACQUIRING AGREEMENT
     Route: 048
  12. AZUNOL GARGLE LIQUID [Concomitant]
     Indication: STOMATITIS
     Dosage: PROPER QUANTITY
     Dates: start: 20200618
  13. BLINDED BEVACIZUMAB [Suspect]
     Active Substance: BEVACIZUMAB
     Indication: SMALL CELL LUNG CANCER
     Route: 042
     Dates: start: 20200611
  14. HOKUNALIN [Concomitant]
     Active Substance: TULOBUTEROL
     Indication: CHRONIC OBSTRUCTIVE PULMONARY DISEASE
     Dosage: THE BEGINNING OF DOSAGE DAY: BEFORE ACQUIRING AGREEMENT
     Route: 062
  15. CISPLATIN. [Suspect]
     Active Substance: CISPLATIN
     Indication: SMALL CELL LUNG CANCER
     Route: 042
  16. FLUTIFORM [Concomitant]
     Active Substance: FLUTICASONE PROPIONATE\FORMOTEROL FUMARATE
     Indication: CHRONIC OBSTRUCTIVE PULMONARY DISEASE
     Dosage: TWO INHALATIONS AND THE BEGINNING OF DOSAGE DAYS: BEFORE ACQUIRING AGREEMENT
     Route: 055
  17. LIPITOR [Concomitant]
     Active Substance: ATORVASTATIN CALCIUM
     Indication: HYPERLIPIDAEMIA
     Dosage: THE BEGINNING OF DOSAGE DAY: BEFORE ACQUIRING AGREEMENT
     Route: 048
  18. G-LASTA [Concomitant]
     Active Substance: PEGFILGRASTIM
     Indication: PROPHYLAXIS
     Dates: start: 20200614
  19. ETOPOSIDE. [Suspect]
     Active Substance: ETOPOSIDE
     Dosage: THIS IS THE MOST RECENT DOSE OF ETOPOSIDE PRIOR TO AE ONSET
     Route: 041
     Dates: start: 20200613
  20. TAKECAB [Concomitant]
     Active Substance: VONOPRAZAN FUMARATE
     Indication: HIATUS HERNIA
     Dosage: THE BEGINNING OF DOSAGE DAY: BEFORE ACQUIRING AGREEMENT
     Route: 048

REACTIONS (4)
  - Dehydration [Recovered/Resolved]
  - Febrile neutropenia [Recovered/Resolved]
  - White blood cell count decreased [Recovered/Resolved]
  - Myositis [Recovering/Resolving]

NARRATIVE: CASE EVENT DATE: 20200620
